FAERS Safety Report 22119105 (Version 1)
Quarter: 2023Q1

REPORT INFORMATION
  Report Type: Spontaneous
  Country: CN (occurrence: CN)
  Receive Date: 20230321
  Receipt Date: 20230321
  Transmission Date: 20230417
  Serious: Yes (Hospitalization, Other)
  Sender: FDA-Public Use
  Company Number: CN-HALEON-CNCH2023APC011756

PATIENT

DRUGS (2)
  1. IBUPROFEN [Suspect]
     Active Substance: IBUPROFEN
     Indication: Pain
     Dosage: 0.3 G, BID
     Route: 048
     Dates: start: 20230305, end: 20230305
  2. IBUPROFEN [Suspect]
     Active Substance: IBUPROFEN
     Dosage: 0.6 G, BID
     Route: 048
     Dates: start: 20230306, end: 20230306

REACTIONS (16)
  - Abdominal pain upper [Recovering/Resolving]
  - Abdominal pain [Recovering/Resolving]
  - Faeces discoloured [Recovering/Resolving]
  - Pain [Recovering/Resolving]
  - Upper gastrointestinal haemorrhage [Recovering/Resolving]
  - Gastritis [Recovering/Resolving]
  - Depressed mood [Recovering/Resolving]
  - Unhealthy diet [Recovering/Resolving]
  - Illness [Recovering/Resolving]
  - Viral hepatitis carrier [Recovering/Resolving]
  - Cholelithiasis [Recovering/Resolving]
  - Renal hamartoma [Recovering/Resolving]
  - Benign prostatic hyperplasia [Recovering/Resolving]
  - Pharyngeal disorder [Recovering/Resolving]
  - Pharyngeal erythema [Recovering/Resolving]
  - Overdose [Unknown]

NARRATIVE: CASE EVENT DATE: 20230301
